FAERS Safety Report 16917554 (Version 16)
Quarter: 2020Q2

REPORT INFORMATION
  Report Type: Report from Study
  Country: US (occurrence: US)
  Receive Date: 20191015
  Receipt Date: 20200520
  Transmission Date: 20200713
  Serious: Yes (Life-Threatening, Hospitalization, Disabling)
  Sender: FDA-Public Use
  Company Number: US-SA-2019SA043635

PATIENT
  Age: 39 Year
  Sex: Female
  Weight: 115 kg

DRUGS (46)
  1. PROAIR HFA [Concomitant]
     Active Substance: ALBUTEROL SULFATE
     Indication: ASTHMA
     Dosage: 2 PUFF
     Route: 050
     Dates: start: 201802
  2. RITALIN [Concomitant]
     Active Substance: METHYLPHENIDATE HYDROCHLORIDE
     Indication: MULTIPLE SCLEROSIS
     Dosage: 20 MG, BID
     Route: 048
     Dates: start: 20170809
  3. NICOTINE. [Concomitant]
     Active Substance: NICOTINE
     Dosage: 21 MG NICOTINE PATCH
     Route: 065
  4. BACLOFEN. [Concomitant]
     Active Substance: BACLOFEN
     Indication: MULTIPLE SCLEROSIS
     Dosage: 80 MG
     Route: 048
     Dates: start: 2009
  5. LYRICA [Concomitant]
     Active Substance: PREGABALIN
     Dosage: 200 MG, TID
  6. BUSPAR [Concomitant]
     Active Substance: BUSPIRONE HYDROCHLORIDE
     Dosage: 7.5 MG, BID
  7. DANTROLENE. [Concomitant]
     Active Substance: DANTROLENE SODIUM
     Indication: MUSCLE SPASMS
     Dosage: 400 MG
     Route: 048
     Dates: start: 201806
  8. INSULIN B [Concomitant]
     Dosage: UNK UNK, UNK
     Route: 065
  9. ACICLOVIR [Concomitant]
     Active Substance: ACYCLOVIR
     Indication: PROPHYLAXIS
     Dosage: 400 MG
     Route: 048
     Dates: start: 20180917
  10. ACETAMINOPHEN. [Concomitant]
     Active Substance: ACETAMINOPHEN
     Indication: PROPHYLAXIS
     Dosage: 1000 MG, UNK
     Route: 048
     Dates: start: 20180917, end: 20180919
  11. PREDNISONE. [Concomitant]
     Active Substance: PREDNISONE
     Dosage: 60 MG
     Route: 048
     Dates: start: 20190710, end: 20190713
  12. ALEMTUZUMAB [Suspect]
     Active Substance: ALEMTUZUMAB
     Indication: RELAPSING MULTIPLE SCLEROSIS
     Dosage: 12 MG, QD
     Route: 041
     Dates: start: 20180917, end: 20180919
  13. ALEMTUZUMAB [Suspect]
     Active Substance: ALEMTUZUMAB
     Dosage: 12 MG, QD
     Route: 041
     Dates: start: 20170911, end: 20170915
  14. DANTROLENE. [Concomitant]
     Active Substance: DANTROLENE SODIUM
     Dosage: 100 MG, QID
  15. MARINOL [Concomitant]
     Active Substance: DRONABINOL
     Indication: MULTIPLE SCLEROSIS
     Dosage: 5 MG, TID
  16. PREDNISONE. [Concomitant]
     Active Substance: PREDNISONE
     Indication: PROPHYLAXIS
     Dosage: 60 MG, QD
     Route: 048
     Dates: start: 20190626
  17. PREDNISONE. [Concomitant]
     Active Substance: PREDNISONE
     Indication: IMMUNE THROMBOCYTOPENIA
     Dosage: 60 MG
     Route: 048
     Dates: start: 20190710, end: 20190713
  18. PREDNISONE. [Concomitant]
     Active Substance: PREDNISONE
     Dosage: 60 UNK
     Route: 048
     Dates: start: 20180920, end: 20180921
  19. LATUDA [Concomitant]
     Active Substance: LURASIDONE HYDROCHLORIDE
     Indication: MIGRAINE
     Dosage: 40 MG
     Route: 048
     Dates: start: 20190301
  20. ZYPREXA [Concomitant]
     Active Substance: OLANZAPINE
     Indication: MIGRAINE
     Dosage: 10 MG, QD
     Route: 048
     Dates: start: 201802
  21. SYMBICORT [Concomitant]
     Active Substance: BUDESONIDE\FORMOTEROL FUMARATE DIHYDRATE
     Indication: ASTHMA
     Dosage: 1 PUFF
     Route: 050
     Dates: start: 201802
  22. TRAZODONE [Concomitant]
     Active Substance: TRAZODONE HYDROCHLORIDE
     Indication: INSOMNIA
     Dosage: 100 MG, HS
     Route: 048
     Dates: start: 201802
  23. MARINOL [Concomitant]
     Active Substance: DRONABINOL
     Dosage: 20 MG
     Route: 048
     Dates: start: 201812
  24. PREDNISONE. [Concomitant]
     Active Substance: PREDNISONE
     Indication: MUSCLE SPASTICITY
     Dosage: 100 MG
     Route: 048
     Dates: start: 20190629, end: 20190701
  25. PREDNISONE. [Concomitant]
     Active Substance: PREDNISONE
     Dosage: 10 MG
     Route: 048
     Dates: start: 20190724, end: 20190730
  26. PREDNISONE. [Concomitant]
     Active Substance: PREDNISONE
     Dosage: 40 MG
     Route: 048
     Dates: start: 20190818
  27. BUSPAR [Concomitant]
     Active Substance: BUSPIRONE HYDROCHLORIDE
     Indication: ANXIETY
     Dosage: 15 MG
     Route: 048
     Dates: start: 201802
  28. MS CONTIN [Concomitant]
     Active Substance: MORPHINE SULFATE
     Indication: MULTIPLE SCLEROSIS
     Dosage: 60 MG
     Route: 048
     Dates: start: 20171218
  29. MARINOL [Concomitant]
     Active Substance: DRONABINOL
     Dosage: 15 MG
     Route: 048
     Dates: start: 20180920, end: 201811
  30. PREDNISONE. [Concomitant]
     Active Substance: PREDNISONE
     Dosage: 40 UNK
     Route: 048
     Dates: start: 20180924, end: 20180925
  31. CIPROFLOXACIN. [Concomitant]
     Active Substance: CIPROFLOXACIN
     Dosage: 500 MG, BID
     Route: 048
     Dates: start: 20181228, end: 20181228
  32. CYMBALTA [Concomitant]
     Active Substance: DULOXETINE HYDROCHLORIDE
     Indication: INSOMNIA
     Dosage: 60 MG, QD
     Dates: start: 201802
  33. SKELAXINE [Concomitant]
     Active Substance: ACETAMINOPHEN\CHLORZOXAZONE
     Indication: MUSCLE SPASMS
     Dosage: 1600 MG
     Route: 048
     Dates: start: 201711
  34. CLINDAMYCIN. [Concomitant]
     Active Substance: CLINDAMYCIN
     Indication: CELLULITIS
     Dosage: 300 MG, TID
     Route: 048
     Dates: start: 20181228, end: 20190106
  35. MORPHINE SULFATE. [Concomitant]
     Active Substance: MORPHINE SULFATE
     Dosage: 30 MG, BID
  36. METHYLPREDNISOLONE. [Concomitant]
     Active Substance: METHYLPREDNISOLONE
     Dosage: 20 MG, BID
     Route: 048
  37. PREDNISONE. [Concomitant]
     Active Substance: PREDNISONE
     Dosage: 20 MG
     Route: 048
     Dates: start: 20190717, end: 20190723
  38. SULFAMETHOXAZOLE AND TRIMETHOPRIM [Concomitant]
     Active Substance: SULFAMETHOXAZOLE\TRIMETHOPRIM
     Indication: PROPHYLAXIS
     Dosage: 800 MG
     Route: 048
     Dates: start: 20180917, end: 20181005
  39. BENADRYL [Concomitant]
     Active Substance: DIPHENHYDRAMINE HYDROCHLORIDE
     Indication: PROPHYLAXIS
     Dosage: 25 MG, UNK
     Route: 048
     Dates: start: 20180917, end: 20180919
  40. FLORASTOR [SACCHAROMYCES BOULARDII] [Concomitant]
     Dosage: 300 MG, TID
     Route: 048
  41. PREDNISONE. [Concomitant]
     Active Substance: PREDNISONE
     Dosage: 40 UNK
     Route: 048
     Dates: start: 20180922, end: 20180923
  42. BACTRIM [Concomitant]
     Active Substance: SULFAMETHOXAZOLE\TRIMETHOPRIM
     Dosage: 60 MG, QD
  43. LYRICA [Concomitant]
     Active Substance: PREGABALIN
     Indication: MULTIPLE SCLEROSIS
     Dosage: 600 MG
     Route: 048
     Dates: start: 201612
  44. RITALIN [Concomitant]
     Active Substance: METHYLPHENIDATE HYDROCHLORIDE
     Dosage: 40 MG, UNK
     Route: 048
     Dates: start: 201803
  45. LIDODERM [Concomitant]
     Active Substance: LIDOCAINE
     Indication: MULTIPLE SCLEROSIS
     Dosage: 5 % (V/V)
     Route: 061
     Dates: start: 201712
  46. PREDNISONE. [Concomitant]
     Active Substance: PREDNISONE
     Dosage: 40 MG
     Route: 048
     Dates: start: 20190714, end: 20190714

REACTIONS (9)
  - Skin ulcer [Recovered/Resolved]
  - Hypotension [Recovered/Resolved]
  - Substance abuse [Not Recovered/Not Resolved]
  - Platelet count decreased [Recovered/Resolved]
  - Cellulitis [Recovered/Resolved]
  - Hepatitis B virus test positive [Not Recovered/Not Resolved]
  - Breast ulceration [Recovered/Resolved]
  - Immune thrombocytopenia [Not Recovered/Not Resolved]
  - Hepatitis C [Not Recovered/Not Resolved]

NARRATIVE: CASE EVENT DATE: 201811
